FAERS Safety Report 24257776 (Version 1)
Quarter: 2024Q3

REPORT INFORMATION
  Report Type: Spontaneous
  Country: CA (occurrence: CA)
  Receive Date: 20240828
  Receipt Date: 20240828
  Transmission Date: 20241016
  Serious: Yes (Hospitalization, Other)
  Sender: TEVA
  Company Number: CA-TEVA-VS-3234998

PATIENT
  Age: 14 Year
  Sex: Male

DRUGS (2)
  1. METHOTREXATE [Suspect]
     Active Substance: METHOTREXATE
     Indication: Prophylaxis against graft versus host disease
     Route: 065
  2. CYCLOSPORINE [Suspect]
     Active Substance: CYCLOSPORINE
     Indication: Prophylaxis against graft versus host disease
     Route: 065

REACTIONS (13)
  - Cushing^s syndrome [Unknown]
  - Anal inflammation [Unknown]
  - Off label use [Unknown]
  - Bone marrow failure [Unknown]
  - Transaminases increased [Unknown]
  - Pancytopenia [Unknown]
  - Cystitis viral [Unknown]
  - Jaundice [Unknown]
  - Hyperbilirubinaemia [Unknown]
  - Anorectal disorder [Unknown]
  - Thrombocytopenia [Unknown]
  - Inflammatory marker increased [Unknown]
  - Red blood cell transfusion [Unknown]
